FAERS Safety Report 21643381 (Version 1)
Quarter: 2022Q4

REPORT INFORMATION
  Report Type: Report from Study
  Country: US (occurrence: US)
  Receive Date: 20221125
  Receipt Date: 20221125
  Transmission Date: 20230112
  Serious: Yes (Other)
  Sender: FDA-Public Use
  Company Number: US-ABBVIE-4212451

PATIENT
  Sex: Female

DRUGS (1)
  1. RINVOQ [Suspect]
     Active Substance: UPADACITINIB
     Indication: Psoriasis
     Route: 048

REACTIONS (7)
  - Loss of consciousness [Recovering/Resolving]
  - Renal impairment [Recovering/Resolving]
  - Dizziness [Unknown]
  - Blood creatine abnormal [Recovering/Resolving]
  - Foot fracture [Unknown]
  - Pain in extremity [Unknown]
  - Dehydration [Unknown]
